FAERS Safety Report 21271029 (Version 3)
Quarter: 2022Q4

REPORT INFORMATION
  Report Type: Spontaneous
  Country: CA (occurrence: CA)
  Receive Date: 20220830
  Receipt Date: 20221004
  Transmission Date: 20230112
  Serious: Yes (Other)
  Sender: FDA-Public Use
  Company Number: CA-PFIZER INC-2020512154

PATIENT
  Age: 77 Year
  Sex: Female
  Weight: 67.4 kg

DRUGS (16)
  1. RUXIENCE [Suspect]
     Active Substance: RITUXIMAB-PVVR
     Indication: Granulomatosis with polyangiitis
     Dosage: 1000 MG AT DAY 0 AND DAY 15
     Route: 042
     Dates: start: 20210211, end: 20210211
  2. RUXIENCE [Suspect]
     Active Substance: RITUXIMAB-PVVR
     Indication: Microscopic polyangiitis
     Dosage: 1000 MG AT DAY 0 AND DAY 15
     Route: 042
     Dates: start: 20210211, end: 20210225
  3. RUXIENCE [Suspect]
     Active Substance: RITUXIMAB-PVVR
     Dosage: 1000 MG AT DAY 0 AND DAY 15
     Route: 042
     Dates: start: 20210225, end: 20210225
  4. RUXIENCE [Suspect]
     Active Substance: RITUXIMAB-PVVR
     Dosage: 1000 MG AT DAY 0 AND DAY 14
     Route: 042
     Dates: start: 20210925, end: 20211008
  5. RUXIENCE [Suspect]
     Active Substance: RITUXIMAB-PVVR
     Dosage: 1000 MG AT DAY 0 AND DAY 14
     Route: 042
     Dates: start: 20211008
  6. RUXIENCE [Suspect]
     Active Substance: RITUXIMAB-PVVR
     Dosage: 1000 MG SINGLE DOSE
     Route: 042
     Dates: start: 20220418, end: 20220418
  7. RUXIENCE [Suspect]
     Active Substance: RITUXIMAB-PVVR
     Dosage: 1000 MG SINGLE DOSE NOT STARTED YET
     Route: 042
  8. ACETAMINOPHEN [Concomitant]
     Active Substance: ACETAMINOPHEN
     Indication: Premedication
     Dosage: 650 MG
     Dates: start: 20210925, end: 20210925
  9. DIPHENHYDRAMINE [Concomitant]
     Active Substance: DIPHENHYDRAMINE
     Indication: Premedication
     Dosage: 50 MG
     Dates: start: 20210925, end: 20210925
  10. PLAQUENIL [Concomitant]
     Active Substance: HYDROXYCHLOROQUINE SULFATE
     Dosage: 300 MG, 1X/DAY 60 DAYS
     Route: 048
  11. PREDNISONE [Concomitant]
     Active Substance: PREDNISONE
     Dosage: 1 DF,UNK DOSE
  12. SOLU-MEDROL [Concomitant]
     Active Substance: METHYLPREDNISOLONE SODIUM SUCCINATE
     Indication: Premedication
     Dosage: 100 MG
     Dates: start: 20210925, end: 20210925
  13. SYNTHROID [Concomitant]
     Active Substance: LEVOTHYROXINE SODIUM
     Dosage: 1 DF,UNK DOSE
  14. TYLENOL [Concomitant]
     Active Substance: ACETAMINOPHEN
     Dosage: 1 DF,UNK DOSE
  15. ZOCOR [Concomitant]
     Active Substance: SIMVASTATIN
     Dosage: 1 DF,UNK DOSE
  16. ZOPICLONE [Concomitant]
     Active Substance: ZOPICLONE
     Dosage: 1 DF,UNK DOSE

REACTIONS (15)
  - Blood pressure increased [Unknown]
  - Pulmonary fibrosis [Not Recovered/Not Resolved]
  - Fungal skin infection [Unknown]
  - Throat irritation [Recovered/Resolved]
  - Flushing [Recovered/Resolved]
  - Erythema [Recovered/Resolved]
  - Tremor [Not Recovered/Not Resolved]
  - Flushing [Not Recovered/Not Resolved]
  - Restlessness [Not Recovered/Not Resolved]
  - Stress [Not Recovered/Not Resolved]
  - Rash [Unknown]
  - Feeling abnormal [Unknown]
  - Off label use [Unknown]
  - Off label use [Unknown]
  - Intentional product use issue [Unknown]

NARRATIVE: CASE EVENT DATE: 20210201
